FAERS Safety Report 10934394 (Version 1)
Quarter: 2015Q1

REPORT INFORMATION
  Report Type: Spontaneous
  Country: FR (occurrence: FR)
  Receive Date: 20150320
  Receipt Date: 20150320
  Transmission Date: 20150721
  Serious: Yes (Hospitalization)
  Sender: FDA-Public Use
  Company Number: FR-ASTRAZENECA-2015SE24569

PATIENT
  Age: 65 Year
  Sex: Male

DRUGS (4)
  1. COVERSYL [Concomitant]
     Active Substance: PERINDOPRIL
     Dates: start: 201109
  2. DUOPLAVIN [Concomitant]
     Active Substance: ASPIRIN\CLOPIDOGREL
     Dates: start: 201109
  3. ATENOLOL. [Concomitant]
     Active Substance: ATENOLOL
     Dates: start: 201109
  4. CRESTOR [Suspect]
     Active Substance: ROSUVASTATIN CALCIUM
     Route: 048

REACTIONS (1)
  - Neutropenia [Unknown]

NARRATIVE: CASE EVENT DATE: 2010
